FAERS Safety Report 17874778 (Version 1)
Quarter: 2020Q2

REPORT INFORMATION
  Report Type: Spontaneous
  Country: US (occurrence: US)
  Receive Date: 20200608
  Receipt Date: 20200608
  Transmission Date: 20200714
  Serious: Yes (Hospitalization)
  Sender: FDA-Public Use
  Company Number: None

PATIENT
  Age: 50 Year
  Sex: Male

DRUGS (12)
  1. CARVEDILOL. [Concomitant]
     Active Substance: CARVEDILOL
  2. ASPIRIN. [Concomitant]
     Active Substance: ASPIRIN
  3. TRAMADOL. [Concomitant]
     Active Substance: TRAMADOL
  4. FOLIC ACID. [Concomitant]
     Active Substance: FOLIC ACID
  5. STIMLANT [Concomitant]
  6. SILDENAFIL. [Suspect]
     Active Substance: SILDENAFIL
     Indication: PULMONARY ARTERIAL HYPERTENSION
     Route: 048
  7. NIFEDIPINE. [Concomitant]
     Active Substance: NIFEDIPINE
  8. BUPROPION. [Concomitant]
     Active Substance: BUPROPION
  9. HYDROMORPHON [Concomitant]
     Active Substance: HYDROMORPHONE
  10. FEROSUL [Concomitant]
     Active Substance: FERROUS SULFATE
  11. PANTOPRAZOLE [Concomitant]
     Active Substance: PANTOPRAZOLE
  12. CIPRO [Concomitant]
     Active Substance: CIPROFLOXACIN HYDROCHLORIDE

REACTIONS (2)
  - Dialysis related complication [None]
  - Abdominal pain upper [None]
